FAERS Safety Report 22085297 (Version 1)
Quarter: 2023Q1

REPORT INFORMATION
  Report Type: Spontaneous
  Country: US (occurrence: None)
  Receive Date: 20230309
  Receipt Date: 20230309
  Transmission Date: 20230417
  Serious: No
  Sender: FDA-Public Use
  Company Number: None

PATIENT
  Age: 69 Year
  Sex: Female

DRUGS (1)
  1. REVLIMID [Suspect]
     Active Substance: LENALIDOMIDE
     Indication: Plasma cell myeloma
     Dosage: FREQUENCY : DAILY;?
     Route: 048
     Dates: start: 20221022, end: 20230309

REACTIONS (8)
  - Neuropathy peripheral [None]
  - Nausea [None]
  - Decreased appetite [None]
  - Therapy interrupted [None]
  - Limb discomfort [None]
  - Hypoaesthesia [None]
  - Burning sensation [None]
  - Loss of personal independence in daily activities [None]
